FAERS Safety Report 4463214-0 (Version None)
Quarter: 2004Q3

REPORT INFORMATION
  Report Type: 
  Country: None (occurrence: None)
  Receive Date: 20040930
  Receipt Date: 20040924
  Transmission Date: 20050211
  Serious: Yes (Congenital Anomaly)
  Sender: FDA-Public Use
  Company Number: BR-ROCHE-381491

PATIENT
  Sex: Female

DRUGS (1)
  1. ROACUTAN [Suspect]
     Indication: ACNE

REACTIONS (3)
  - ANOPHTHALMOS [None]
  - MENTAL RETARDATION SEVERITY UNSPECIFIED [None]
  - TRANSMISSION OF DRUG VIA SEMEN [None]
